FAERS Safety Report 7506095-0 (Version None)
Quarter: 2011Q2

REPORT INFORMATION
  Report Type: 
  Country: None (occurrence: None)
  Receive Date: 20110526
  Receipt Date: 20110524
  Transmission Date: 20111010
  Serious: Yes (Hospitalization)
  Sender: FDA-Public Use
  Company Number: FR-AMGEN-FRASP2011021518

PATIENT
  Age: 75 Year
  Sex: Male

DRUGS (13)
  1. ALIMTA [Concomitant]
     Dosage: 400 MG/M2, ONE TIME DOSE
     Route: 042
     Dates: start: 20100909
  2. BISOPROLOL FUMARATE [Concomitant]
     Dosage: 2.5 MG, QD
  3. ACIDE FOLIQUE [Concomitant]
  4. NEULASTA [Suspect]
     Indication: CHEMOTHERAPY
     Dosage: 6 MG, ONE TIME DOSE
     Route: 042
  5. TRIATEC                            /00116401/ [Concomitant]
     Dosage: 2.5 MG, QD
  6. NEXIUM [Concomitant]
     Dosage: 40 MG, QD
  7. TAXOL [Concomitant]
     Dosage: UNK
     Dates: start: 20100302, end: 20100511
  8. TARCEVA [Concomitant]
     Dosage: UNK
  9. TRILEPTAL FILM-COATED TABLET [Concomitant]
     Dosage: 600 MG, QD
  10. CARBOPLATIN [Concomitant]
     Dosage: UNK
     Dates: start: 20100302, end: 20100511
  11. AVASTIN [Concomitant]
     Dosage: UNK
     Dates: start: 20100302, end: 20100806
  12. CLONAZEPAM [Concomitant]
     Dosage: 5 GTT, UNK
  13. SOLUPRED                           /00016201/ [Concomitant]
     Dosage: 20 MG, UNK

REACTIONS (3)
  - SEGMENTED HYALINISING VASCULITIS [None]
  - TRANSAMINASES INCREASED [None]
  - THROMBOCYTOPENIA [None]
